FAERS Safety Report 9295325 (Version 1)
Quarter: 2013Q2

REPORT INFORMATION
  Report Type: Spontaneous
  Country: ES (occurrence: ES)
  Receive Date: 20130517
  Receipt Date: 20130517
  Transmission Date: 20140414
  Serious: Yes (Hospitalization)
  Sender: FDA-Public Use
  Company Number: ES-SANOFI-AVENTIS-2013SA047825

PATIENT
  Age: 87 Year
  Sex: Female

DRUGS (2)
  1. DAONIL [Suspect]
     Indication: TYPE 2 DIABETES MELLITUS
     Route: 048
     Dates: start: 201212, end: 20130227
  2. FUROSEMID [Interacting]
     Indication: HYPERTENSION
     Route: 048
     Dates: start: 201212, end: 20130227

REACTIONS (2)
  - Dehydration [Recovering/Resolving]
  - Hypoglycaemia [Recovering/Resolving]
